FAERS Safety Report 12310963 (Version 1)
Quarter: 2016Q2

REPORT INFORMATION
  Report Type: Spontaneous
  Country: US (occurrence: US)
  Receive Date: 20160427
  Receipt Date: 20160427
  Transmission Date: 20160815
  Serious: No
  Sender: FDA-Public Use
  Company Number: US-PFIZER INC-2016187009

PATIENT

DRUGS (2)
  1. PROCARDIA XL [Suspect]
     Active Substance: NIFEDIPINE
     Dosage: 30 MG, UNK
  2. NIFEDICAL XL [Suspect]
     Active Substance: NIFEDIPINE
     Dosage: UNK

REACTIONS (2)
  - Headache [Unknown]
  - Blood pressure inadequately controlled [Unknown]
